FAERS Safety Report 21974845 (Version 2)
Quarter: 2023Q1

REPORT INFORMATION
  Report Type: Spontaneous
  Country: TR (occurrence: TR)
  Receive Date: 20230209
  Receipt Date: 20230224
  Transmission Date: 20230418
  Serious: Yes (Hospitalization)
  Sender: FDA-Public Use
  Company Number: TR-TEVA-2023-TR-2852727

PATIENT
  Age: 22 Year
  Sex: Male

DRUGS (3)
  1. PREDNISOLONE [Suspect]
     Active Substance: PREDNISOLONE
     Indication: Symptomatic treatment
     Dosage: 1*80MG (1 TIMES 80MG )
     Route: 042
  2. VALPROIC ACID [Suspect]
     Active Substance: VALPROIC ACID
     Indication: Epilepsy
     Dosage: FOR 10 YEARS
     Route: 065
  3. LEVOCARNITINE [Suspect]
     Active Substance: LEVOCARNITINE
     Indication: Hepatotoxicity
     Dosage: 6*1 G (6 TIMES 1G)
     Route: 042

REACTIONS (2)
  - Hepatotoxicity [Recovered/Resolved]
  - Rebound effect [Unknown]
